FAERS Safety Report 23038947 (Version 3)
Quarter: 2023Q4

REPORT INFORMATION
  Report Type: Report from Study
  Country: DE (occurrence: DE)
  Receive Date: 20231006
  Receipt Date: 20231025
  Transmission Date: 20240110
  Serious: Yes (Hospitalization)
  Sender: FDA-Public Use
  Company Number: DE-SA-2019SA324432

PATIENT
  Age: 37 Year
  Sex: Male
  Weight: 85 kg

DRUGS (2)
  1. DUPILUMAB [Suspect]
     Active Substance: DUPILUMAB
     Indication: Dermatitis atopic
     Dosage: 300 MG, QOW
     Route: 058
     Dates: start: 20180809
  2. CYCLOSPORINE [Concomitant]
     Active Substance: CYCLOSPORINE

REACTIONS (6)
  - Urinary tract infection [Recovered/Resolved]
  - Prostatitis [Recovered/Resolved]
  - Eczema [Recovered/Resolved]
  - Urticaria [Recovered/Resolved]
  - Conjunctivitis allergic [Not Recovered/Not Resolved]
  - Paternal exposure during pregnancy [Recovered/Resolved]

NARRATIVE: CASE EVENT DATE: 20190706
